FAERS Safety Report 17464133 (Version 1)
Quarter: 2020Q1

REPORT INFORMATION
  Report Type: Spontaneous
  Country: US (occurrence: US)
  Receive Date: 20200226
  Receipt Date: 20200226
  Transmission Date: 20200409
  Serious: No
  Sender: FDA-Public Use
  Company Number: US-BRISTOL-MYERS SQUIBB COMPANY-BMS-2019-027355

PATIENT
  Sex: Female

DRUGS (1)
  1. SPRYCEL [Suspect]
     Active Substance: DASATINIB
     Indication: CHRONIC MYELOID LEUKAEMIA
     Dosage: TAKE 1 TABLET (100 MG) BY MOUTH ONCE DAILY AT THE SAME TIME. MAY TAKE WITH OR WITHOUT FOOD. SWALLOW
     Route: 048
     Dates: start: 201808

REACTIONS (1)
  - Abdominal discomfort [Recovered/Resolved]
